FAERS Safety Report 20303905 (Version 2)
Quarter: 2022Q1

REPORT INFORMATION
  Report Type: Spontaneous
  Country: US (occurrence: None)
  Receive Date: 20220106
  Receipt Date: 20220203
  Transmission Date: 20220423
  Serious: No
  Sender: FDA-Public Use
  Company Number: 2021A869300

PATIENT
  Age: 27654 Day
  Sex: Male
  Weight: 57.6 kg

DRUGS (3)
  1. BUDESONIDE\FORMOTEROL\GLYCOPYRRONIUM [Suspect]
     Active Substance: BUDESONIDE\FORMOTEROL\GLYCOPYRRONIUM
     Indication: Chronic obstructive pulmonary disease
     Dosage: 160MCG/9MCG/4.8MCG
     Route: 055
  2. BUDESONIDE\FORMOTEROL\GLYCOPYRRONIUM [Suspect]
     Active Substance: BUDESONIDE\FORMOTEROL\GLYCOPYRRONIUM
     Indication: Emphysema
     Dosage: 160MCG/9MCG/4.8MCG
     Route: 055
  3. TRELIGY [Concomitant]

REACTIONS (6)
  - Illness [Unknown]
  - Dyspnoea [Unknown]
  - Device malfunction [Unknown]
  - Product dose omission issue [Unknown]
  - Intentional device misuse [Unknown]
  - Off label use [Unknown]

NARRATIVE: CASE EVENT DATE: 20211210
